FAERS Safety Report 8976180 (Version 2)
Quarter: 2013Q1

REPORT INFORMATION
  Report Type: Spontaneous
  Country: US (occurrence: US)
  Receive Date: 20121220
  Receipt Date: 20130116
  Transmission Date: 20140127
  Serious: Yes (Death)
  Sender: FDA-Public Use
  Company Number: US-ELI_LILLY_AND_COMPANY-US201212004132

PATIENT
  Age: 63 Year
  Sex: Male
  Weight: 54 kg

DRUGS (4)
  1. ALIMTA [Suspect]
     Indication: OESOPHAGEAL ADENOCARCINOMA METASTATIC
     Dosage: 800 MG, OTHER
     Route: 042
     Dates: start: 20120111, end: 20120425
  2. VITAMIN B12 [Concomitant]
     Dosage: 1000 MG, WEEKLY (1/W)
     Route: 048
     Dates: start: 20120111, end: 20120426
  3. FOLIC ACID [Concomitant]
     Dosage: 1 MG, QD
     Route: 048
     Dates: start: 20120111, end: 20120426
  4. CORTICOSTEROID NOS [Concomitant]
     Dosage: 4 MG, BID
     Route: 048
     Dates: start: 20110816, end: 20120525

REACTIONS (2)
  - Death [Fatal]
  - Off label use [Unknown]
